FAERS Safety Report 17730528 (Version 1)
Quarter: 2020Q2

REPORT INFORMATION
  Report Type: Report from Study
  Country: CA (occurrence: CA)
  Receive Date: 20200430
  Receipt Date: 20200430
  Transmission Date: 20200714
  Serious: Yes (Death)
  Sender: FDA-Public Use
  Company Number: CA-TAIHO ONCOLOGY  INC-EU-2020-01451

PATIENT
  Age: 64 Year
  Sex: Female
  Weight: 70.5 kg

DRUGS (1)
  1. LONSURF [Suspect]
     Active Substance: TIPIRACIL HYDROCHLORIDE\TRIFLURIDINE
     Indication: COLORECTAL CANCER METASTATIC
     Dosage: CYCLES 1-6
     Route: 048
     Dates: start: 201905

REACTIONS (1)
  - Death [Fatal]

NARRATIVE: CASE EVENT DATE: 202004
